FAERS Safety Report 25394335 (Version 1)
Quarter: 2025Q2

REPORT INFORMATION
  Report Type: Spontaneous
  Country: RO (occurrence: RO)
  Receive Date: 20250604
  Receipt Date: 20250604
  Transmission Date: 20250717
  Serious: Yes (Death, Other)
  Sender: CELLTRION
  Company Number: RO-ROCHE-10000149470

PATIENT

DRUGS (4)
  1. BEVACIZUMAB [Suspect]
     Active Substance: BEVACIZUMAB
     Indication: Adenocarcinoma metastatic
     Route: 042
     Dates: start: 202206
  2. ATEZOLIZUMAB [Suspect]
     Active Substance: ATEZOLIZUMAB
     Indication: Adenocarcinoma metastatic
     Route: 042
     Dates: start: 202206
  3. PACLITAXEL [Suspect]
     Active Substance: PACLITAXEL
     Indication: Adenocarcinoma metastatic
     Route: 042
     Dates: start: 202206
  4. CARBOPLATIN [Suspect]
     Active Substance: CARBOPLATIN
     Indication: Adenocarcinoma metastatic
     Route: 065
     Dates: start: 202206

REACTIONS (11)
  - Cardio-respiratory arrest [Fatal]
  - Metastases to bone [Unknown]
  - Metastases to liver [Unknown]
  - Pneumonia [Unknown]
  - Disease progression [Unknown]
  - Ill-defined disorder [Unknown]
  - Bone disorder [Unknown]
  - Haemoptysis [Unknown]
  - Anaemia [Unknown]
  - Weight decreased [Unknown]
  - Upper respiratory tract infection [Unknown]
